FAERS Safety Report 12563158 (Version 5)
Quarter: 2017Q2

REPORT INFORMATION
  Report Type: Spontaneous
  Country: US (occurrence: US)
  Receive Date: 20160715
  Receipt Date: 20170403
  Transmission Date: 20170830
  Serious: Yes (Hospitalization)
  Sender: FDA-Public Use
  Company Number: US-PFIZER INC-2016305881

PATIENT
  Age: 65 Year
  Sex: Male
  Weight: 108.8 kg

DRUGS (87)
  1. PRALUENT [Concomitant]
     Active Substance: ALIROCUMAB
     Dosage: 150 MG, UNK (1 INJ EVERY 14 DAYS)
     Dates: start: 20160510
  2. PRALUENT [Concomitant]
     Active Substance: ALIROCUMAB
     Dosage: 150 MG, UNK (1 INJ EVERY 14 DAYS)
     Dates: start: 20160621
  3. PRALUENT [Concomitant]
     Active Substance: ALIROCUMAB
     Dosage: 150 MG, UNK (1 INJ EVERY 14 DAYS)
     Dates: start: 20160926
  4. PRALUENT [Concomitant]
     Active Substance: ALIROCUMAB
     Dosage: 75 MG/ML  (Q2 WEEKS AS DIRECTED)
  5. ZOLOFT [Concomitant]
     Active Substance: SERTRALINE HYDROCHLORIDE
     Dosage: 100 MG, UNK
     Dates: start: 20161121
  6. VITAMIN D3 [Concomitant]
     Active Substance: CHOLECALCIFEROL
     Dosage: 1000 IU AS DIRECTED QD
  7. HUMALOG [Concomitant]
     Active Substance: INSULIN LISPRO
     Dosage: 100 IU/ML, (59 UNITS CONTINUOUS IN PUMP)
  8. AVAPRO [Concomitant]
     Active Substance: IRBESARTAN
     Dosage: 300 MG, UNK
     Dates: start: 20161024
  9. AVAPRO [Concomitant]
     Active Substance: IRBESARTAN
     Dosage: 150 MG, 2X/DAY (AM + PM )
     Dates: start: 20161124
  10. NITROSTAT [Concomitant]
     Active Substance: NITROGLYCERIN
     Dosage: 5MG UP TO 15 MG, AS NEEDED
  11. PRALUENT [Concomitant]
     Active Substance: ALIROCUMAB
     Dosage: 150 MG, UNK (1 INJ EVERY 14 DAYS)
     Dates: start: 20160329
  12. PRALUENT [Concomitant]
     Active Substance: ALIROCUMAB
     Dosage: 150 MG, UNK (1 INJ EVERY 14 DAYS)
     Dates: start: 20160412
  13. PRALUENT [Concomitant]
     Active Substance: ALIROCUMAB
     Dosage: 150 MG, UNK (1 INJ EVERY 14 DAYS)
     Dates: start: 20160426
  14. PRALUENT [Concomitant]
     Active Substance: ALIROCUMAB
     Dosage: 150 MG, UNK (1 INJ EVERY 14 DAYS)
     Dates: start: 20160802
  15. PRALUENT [Concomitant]
     Active Substance: ALIROCUMAB
     Dosage: 150 MG, UNK (1 INJ EVERY 14 DAYS)
     Dates: start: 20160816
  16. PRALUENT [Concomitant]
     Active Substance: ALIROCUMAB
     Dosage: 150 MG, UNK (1 INJ EVERY 14 DAYS)
     Dates: start: 20161108
  17. PRALUENT [Concomitant]
     Active Substance: ALIROCUMAB
     Dosage: 150 MG, UNK (1 INJ EVERY 14 DAYS)
     Dates: start: 20161220
  18. ZOLOFT [Concomitant]
     Active Substance: SERTRALINE HYDROCHLORIDE
     Dosage: 50 MG, 1X/DAY
  19. XANAX [Concomitant]
     Active Substance: ALPRAZOLAM
     Dosage: 0.5 MG, 3X/DAY (TAKES ONE TO TWO A DAY, MAYBE ONE AT NIGHT)
     Dates: start: 20160929
  20. ZYLET [Concomitant]
     Active Substance: LOTEPREDNOL ETABONATE\TOBRAMYCIN
     Dosage: 2 GTT, EVERY 4 HRS (0.5%-0.3% SUSPENSION) (2 GTT)
  21. PLAVIX [Concomitant]
     Active Substance: CLOPIDOGREL BISULFATE
     Indication: CARDIAC DISORDER
     Dosage: 75 MG, 1X/DAY
     Route: 048
     Dates: start: 200901
  22. NITROSTAT [Concomitant]
     Active Substance: NITROGLYCERIN
     Dosage: 5 MG, UNK
     Dates: start: 20161013
  23. VITAMIN B12 [Concomitant]
     Active Substance: CYANOCOBALAMIN
     Dosage: 2000 MG, DAILY
  24. PRALUENT [Concomitant]
     Active Substance: ALIROCUMAB
     Dosage: 150 MG, UNK (1 INJ EVERY 14 DAYS)
     Dates: start: 20160119
  25. PRALUENT [Concomitant]
     Active Substance: ALIROCUMAB
     Dosage: 150 MG, UNK (1 INJ EVERY 14 DAYS)
     Dates: start: 20160524
  26. PRALUENT [Concomitant]
     Active Substance: ALIROCUMAB
     Dosage: 150 MG, UNK (1 INJ EVERY 14 DAYS)
     Dates: start: 20160607
  27. PRALUENT [Concomitant]
     Active Substance: ALIROCUMAB
     Dosage: 150 MG, UNK (1 INJ EVERY 14 DAYS)
     Dates: start: 20160705
  28. PRALUENT [Concomitant]
     Active Substance: ALIROCUMAB
     Dosage: 150 MG, UNK (1 INJ EVERY 14 DAYS)
     Dates: start: 20161205
  29. FLU SHOT [Concomitant]
     Active Substance: INFLUENZA VIRUS VACCINE
     Dosage: UNK
     Dates: start: 20151021
  30. ZOLOFT [Concomitant]
     Active Substance: SERTRALINE HYDROCHLORIDE
     Indication: DEPRESSION
     Dosage: 50 MG, UNK
     Dates: start: 20161110
  31. LYRICA [Suspect]
     Active Substance: PREGABALIN
     Indication: PARAESTHESIA
     Dosage: 75 MG, 3X/DAY
     Route: 048
  32. LYRICA [Suspect]
     Active Substance: PREGABALIN
     Indication: HYPOAESTHESIA
  33. TOPROL XL [Concomitant]
     Active Substance: METOPROLOL SUCCINATE
     Indication: CARDIAC DISORDER
     Dosage: 50 MG, 1X/DAY [50 MG IN AM IF BP IS ABOVE 150]
     Route: 048
     Dates: start: 200901
  34. IMDUR [Concomitant]
     Active Substance: ISOSORBIDE MONONITRATE
     Indication: CARDIAC DISORDER
     Dosage: 60 MG, 1X/DAY
     Route: 048
     Dates: start: 200901
  35. ZEMPLAR [Concomitant]
     Active Substance: PARICALCITOL
     Indication: RENAL DISORDER
     Dosage: 1 UG, 4 X A WEEK
  36. AVAPRO [Concomitant]
     Active Substance: IRBESARTAN
     Dosage: 150 MG, 2X/DAY
  37. PRALUENT [Concomitant]
     Active Substance: ALIROCUMAB
     Dosage: 150 MG, UNK (1 INJ EVERY 14 DAYS)
     Dates: start: 20151124
  38. PRALUENT [Concomitant]
     Active Substance: ALIROCUMAB
     Dosage: 150 MG, UNK (1 INJ EVERY 14 DAYS)
     Dates: start: 20160105
  39. PRALUENT [Concomitant]
     Active Substance: ALIROCUMAB
     Dosage: 150 MG, UNK (1 INJ EVERY 14 DAYS)
     Dates: start: 20160315
  40. PRALUENT [Concomitant]
     Active Substance: ALIROCUMAB
     Dosage: 150 MG, UNK (1 INJ EVERY 14 DAYS)
     Dates: start: 20160830
  41. PRALUENT [Concomitant]
     Active Substance: ALIROCUMAB
     Dosage: 150 MG, UNK (1 INJ EVERY 14 DAYS)
     Dates: start: 20170102
  42. TORSEMIDE. [Concomitant]
     Active Substance: TORSEMIDE
     Dosage: 20 MG, UNK
     Dates: start: 20161001
  43. ASA [Concomitant]
     Active Substance: ASPIRIN
     Dosage: 81 MG, 1X/DAY
  44. PENTOXIFYLLINE. [Concomitant]
     Active Substance: PENTOXIFYLLINE
     Dosage: 400 MG, 3X/DAY
     Route: 048
  45. NITROSTAT [Concomitant]
     Active Substance: NITROGLYCERIN
     Dosage: 10 MG, UNK
     Dates: start: 20140605
  46. NITROSTAT [Concomitant]
     Active Substance: NITROGLYCERIN
     Dosage: UNK (5 TABLET)
  47. FLU SHOT [Concomitant]
     Active Substance: INFLUENZA VIRUS VACCINE
     Dosage: UNK
     Dates: start: 20161012
  48. SODIUM BICARBONATE. [Concomitant]
     Active Substance: SODIUM BICARBONATE
     Dosage: 650 MG, 2X/DAY
     Dates: start: 20160614
  49. TORSEMIDE. [Concomitant]
     Active Substance: TORSEMIDE
     Dosage: 20 MG, UNK
     Dates: start: 20161005
  50. ASPIRIN. [Concomitant]
     Active Substance: ASPIRIN
     Indication: CARDIAC DISORDER
     Dosage: 81 MG, 2X/DAY
     Route: 048
     Dates: start: 2009
  51. PENTOXIFYLLINE. [Concomitant]
     Active Substance: PENTOXIFYLLINE
     Indication: PAIN
     Dosage: 400 MG, 2X/DAY
     Route: 048
     Dates: start: 2000
  52. IMDUR [Concomitant]
     Active Substance: ISOSORBIDE MONONITRATE
     Dosage: 60 MG, 1X/DAY (IN THE MORNING)
     Route: 048
  53. VITAMIN D [Concomitant]
     Active Substance: CHOLECALCIFEROL
     Indication: VITAMIN D ABNORMAL
     Dosage: 7000 MG, DAILY
     Dates: start: 20150820
  54. ZEMPLAR [Concomitant]
     Active Substance: PARICALCITOL
     Dosage: 1 UG, 1X/DAY
  55. AVAPRO [Concomitant]
     Active Substance: IRBESARTAN
     Indication: RENAL DISORDER
     Dosage: 300 MG, UNK
     Dates: start: 20161022
  56. PRALUENT [Concomitant]
     Active Substance: ALIROCUMAB
     Indication: BLOOD CHOLESTEROL ABNORMAL
     Dosage: 150 MG, 1 INJ EVERY 14 DAYS
     Dates: start: 20150929
  57. PRALUENT [Concomitant]
     Active Substance: ALIROCUMAB
     Dosage: 150 MG, UNK (1 INJ EVERY 14 DAYS)
     Dates: start: 20151027
  58. PRALUENT [Concomitant]
     Active Substance: ALIROCUMAB
     Dosage: 150 MG, UNK (1 INJ EVERY 14 DAYS)
     Dates: start: 20160202
  59. PRALUENT [Concomitant]
     Active Substance: ALIROCUMAB
     Dosage: 150 MG, UNK (1 INJ EVERY 14 DAYS)
     Dates: start: 20160913
  60. PRALUENT [Concomitant]
     Active Substance: ALIROCUMAB
     Dosage: 150 MG, UNK (1 INJ EVERY 14 DAYS)
     Dates: start: 20161011
  61. PRALUENT [Concomitant]
     Active Substance: ALIROCUMAB
     Dosage: 150 MG, UNK (1 INJ EVERY 14 DAYS)
     Dates: start: 20161025
  62. PRALUENT [Concomitant]
     Active Substance: ALIROCUMAB
     Dosage: 150 MG, UNK (1 INJ EVERY 14 DAYS)
     Dates: start: 20161122
  63. CARDURA [Concomitant]
     Active Substance: DOXAZOSIN MESYLATE
     Dosage: 1 MG, 1X/DAY (IN PM)
     Dates: start: 20170111
  64. ZOLOFT [Concomitant]
     Active Substance: SERTRALINE HYDROCHLORIDE
     Dosage: 50 MG, UNK
     Dates: start: 20161201
  65. TORSEMIDE. [Concomitant]
     Active Substance: TORSEMIDE
     Dosage: 20 MG, UNK
     Dates: start: 20160929
  66. AVAPRO [Concomitant]
     Active Substance: IRBESARTAN
     Indication: BLOOD PRESSURE ABNORMAL
     Dosage: 300 MG, UNK
     Dates: start: 20161023
  67. NITROSTAT [Concomitant]
     Active Substance: NITROGLYCERIN
     Dosage: UNK (TOOK 5)
     Dates: start: 20160915
  68. PRALUENT [Concomitant]
     Active Substance: ALIROCUMAB
     Dosage: 150 MG, UNK (1 INJ EVERY 14 DAYS)
     Dates: start: 20151013
  69. PRALUENT [Concomitant]
     Active Substance: ALIROCUMAB
     Dosage: 150 MG, UNK (1 INJ EVERY 14 DAYS)
     Dates: start: 20151208
  70. PRALUENT [Concomitant]
     Active Substance: ALIROCUMAB
     Dosage: 150 MG, UNK (1 INJ EVERY 14 DAYS)
     Dates: start: 20151222
  71. PRALUENT [Concomitant]
     Active Substance: ALIROCUMAB
     Dosage: 150 MG, UNK (1 INJ EVERY 14 DAYS)
     Dates: start: 20160719
  72. PRALUENT [Concomitant]
     Active Substance: ALIROCUMAB
     Dosage: 150 MG, UNK (1 INJ EVERY 14 DAYS)
     Dates: start: 20170117
  73. LANTUS [Concomitant]
     Active Substance: INSULIN GLARGINE
     Dosage: UNK
  74. ZOLOFT [Concomitant]
     Active Substance: SERTRALINE HYDROCHLORIDE
     Indication: STRESS
     Dosage: 25 MG, 1X/DAY
     Dates: start: 20161021, end: 20161109
  75. LYRICA [Suspect]
     Active Substance: PREGABALIN
     Indication: NEUROPATHY PERIPHERAL
     Dosage: 50 MG, 2X/DAY
     Route: 048
  76. HUMALOG [Concomitant]
     Active Substance: INSULIN LISPRO
     Dosage: 100 IU/ML, (58 UNITS CONTINUOUS IN PUMP)
  77. AVAPRO [Concomitant]
     Active Substance: IRBESARTAN
     Indication: CARDIAC DISORDER
     Dosage: 150 MG, 1X/DAY
     Dates: start: 2009, end: 20161021
  78. NITROSTAT [Concomitant]
     Active Substance: NITROGLYCERIN
     Dosage: TWICE NIGHT
     Dates: start: 20151107
  79. VITAMIN B12 [Concomitant]
     Active Substance: CYANOCOBALAMIN
     Indication: VITAMIN B COMPLEX DEFICIENCY
     Dosage: 1000 MG, 1X/DAY
     Dates: start: 20150910
  80. PRALUENT [Concomitant]
     Active Substance: ALIROCUMAB
     Dosage: 150 MG, UNK (1 INJ EVERY 14 DAYS)
     Dates: start: 20160216
  81. TOPROL XL [Concomitant]
     Active Substance: METOPROLOL SUCCINATE
     Dosage: 25 MG, 2X/DAY IF BELOW 140 [25 MG IN AM; 25 MG IN PM]
     Route: 048
  82. HUMALOG [Concomitant]
     Active Substance: INSULIN LISPRO
     Indication: DIABETES MELLITUS
     Dosage: UNK
  83. NITROSTAT [Concomitant]
     Active Substance: NITROGLYCERIN
     Dosage: UNK
     Dates: start: 201510
  84. NITROSTAT [Concomitant]
     Active Substance: NITROGLYCERIN
     Dosage: 5 MG, UNK
     Dates: start: 20160924
  85. VITAMIN B12 [Concomitant]
     Active Substance: CYANOCOBALAMIN
     Dosage: 1000 MG, DAILY
  86. PRALUENT [Concomitant]
     Active Substance: ALIROCUMAB
     Dosage: 150 MG, UNK (1 INJ EVERY 14 DAYS)
     Dates: start: 20151110
  87. PRALUENT [Concomitant]
     Active Substance: ALIROCUMAB
     Dosage: 150 MG, UNK (1 INJ EVERY 14 DAYS)
     Dates: start: 20160301

REACTIONS (6)
  - Contusion [Unknown]
  - Drug dose omission [Not Recovered/Not Resolved]
  - Neuropathy peripheral [Unknown]
  - Blood glucose abnormal [Unknown]
  - Injection site infection [Unknown]
  - Condition aggravated [Unknown]
